FAERS Safety Report 5530197-1 (Version None)
Quarter: 2007Q4

REPORT INFORMATION
  Report Type: 
  Country: None (occurrence: None)
  Receive Date: 20071130
  Receipt Date: 20071121
  Transmission Date: 20080405
  Serious: Yes (Other)
  Sender: FDA-Public Use
  Company Number: GB-JNJFOC-20071109365

PATIENT
  Age: 22 Year
  Sex: Female

DRUGS (7)
  1. REMICADE [Suspect]
     Indication: MYOSITIS
     Route: 042
  2. PREDNISOLONE [Concomitant]
  3. LANSOPRAZOLE [Concomitant]
  4. FOLIC ACID [Concomitant]
  5. FOSSAMAX [Concomitant]
  6. IBRUPROFEN [Concomitant]
  7. TRAMADOL HCL [Concomitant]

REACTIONS (1)
  - RAYNAUD'S PHENOMENON [None]
